FAERS Safety Report 10557480 (Version 1)
Quarter: 2014Q4

REPORT INFORMATION
  Report Type: Spontaneous
  Country: US (occurrence: None)
  Receive Date: 20141030
  Receipt Date: 20141030
  Transmission Date: 20150529
  Serious: Yes (Disabling)
  Sender: FDA-Public Use
  Company Number: None

PATIENT
  Age: 51 Year
  Sex: Female
  Weight: 58.97 kg

DRUGS (1)
  1. LORAZEPAM 1 MG [Suspect]
     Active Substance: LORAZEPAM
     Indication: ANXIETY
     Dosage: 3 MG PER DAY THREE TIMES DAILY SWALLOWED
     Route: 048

REACTIONS (16)
  - Tension headache [None]
  - Impaired work ability [None]
  - Palpitations [None]
  - Drug withdrawal syndrome [None]
  - Abdominal discomfort [None]
  - Insomnia [None]
  - Tinnitus [None]
  - Tremor [None]
  - Agitation [None]
  - Paraesthesia [None]
  - Depression [None]
  - Hyperhidrosis [None]
  - Panic attack [None]
  - Anxiety [None]
  - Fear [None]
  - Neuralgia [None]
